FAERS Safety Report 11839617 (Version 1)
Quarter: 2015Q4

REPORT INFORMATION
  Report Type: Spontaneous
  Country: US (occurrence: None)
  Receive Date: 20151214
  Receipt Date: 20151214
  Transmission Date: 20160305
  Serious: Yes (Hospitalization)
  Sender: FDA-Public Use
  Company Number: None

PATIENT
  Age: 50 Year
  Sex: Male

DRUGS (17)
  1. MAGOX [Concomitant]
  2. NYSTATIN. [Concomitant]
     Active Substance: NYSTATIN
  3. ASPIRIN. [Concomitant]
     Active Substance: ASPIRIN
  4. TACROLIMUS 2MG ACCORD [Suspect]
     Active Substance: TACROLIMUS
     Indication: RENAL TRANSPLANT
     Route: 048
  5. SULFAMETHOXAZOLE-TRIMETHOPRIM (SMZ) [Concomitant]
     Active Substance: SULFAMETHOXAZOLE\TRIMETHOPRIM
  6. PREDNISONE. [Concomitant]
     Active Substance: PREDNISONE
  7. DOCUSATE [Concomitant]
     Active Substance: DOCUSATE
  8. CLONIDINE. [Concomitant]
     Active Substance: CLONIDINE
  9. CATAPRES-TTS [Concomitant]
     Active Substance: CLONIDINE
  10. PRILOSEC [Concomitant]
     Active Substance: OMEPRAZOLE MAGNESIUM
  11. DILTIAZEM [Concomitant]
     Active Substance: DILTIAZEM
  12. FUROSEMIDE. [Concomitant]
     Active Substance: FUROSEMIDE
  13. PHOSPHA [Concomitant]
  14. MINOXIDIL. [Concomitant]
     Active Substance: MINOXIDIL
  15. OYST-CAL [Concomitant]
  16. MYCOPHENOLATE 250MG TEVA [Suspect]
     Active Substance: MYCOPHENOLIC ACID
     Indication: RENAL TRANSPLANT
     Route: 048
  17. TIMOLOL. [Concomitant]
     Active Substance: TIMOLOL

REACTIONS (1)
  - Renal failure [None]

NARRATIVE: CASE EVENT DATE: 20151209
